FAERS Safety Report 20340347 (Version 1)
Quarter: 2022Q1

REPORT INFORMATION
  Report Type: Spontaneous
  Country: None (occurrence: US)
  Receive Date: 20220117
  Receipt Date: 20220117
  Transmission Date: 20220424
  Serious: Yes (Hospitalization)
  Sender: FDA-Public Use
  Company Number: US-Y-mAbs Therapeutics-2123988

PATIENT
  Sex: Female

DRUGS (2)
  1. DANYELZA [Suspect]
     Active Substance: NAXITAMAB-GQGK
     Indication: Neuroblastoma
     Route: 041
     Dates: start: 20211201, end: 20211205
  2. DILAUDID [Concomitant]
     Active Substance: HYDROMORPHONE HYDROCHLORIDE
     Route: 041
     Dates: start: 20211201, end: 20211205

REACTIONS (4)
  - Hypertension [Unknown]
  - Hypertension [Unknown]
  - Hypertension [Unknown]
  - Hyponatraemia [Unknown]

NARRATIVE: CASE EVENT DATE: 20211201
